FAERS Safety Report 5324411-5 (Version None)
Quarter: 2007Q2

REPORT INFORMATION
  Report Type: 
  Country: None (occurrence: None)
  Receive Date: 20070514
  Receipt Date: 20070510
  Transmission Date: 20071010
  Serious: Yes (Other)
  Sender: FDA-Public Use
  Company Number: GB-MERCK-0705GBR00040

PATIENT
  Age: 70 Year
  Sex: Male

DRUGS (5)
  1. ZOCOR [Suspect]
     Indication: PROPHYLAXIS
     Route: 048
     Dates: start: 20061221, end: 20070401
  2. AMLODIPINE BESYLATE [Concomitant]
     Route: 048
     Dates: start: 20050101
  3. ATENOLOL [Concomitant]
     Route: 048
     Dates: start: 20050101
  4. ATORVASTATIN [Concomitant]
     Indication: PROPHYLAXIS
     Route: 048
     Dates: start: 20050101
  5. PERINDOPRIL [Concomitant]
     Route: 048
     Dates: start: 20050101

REACTIONS (4)
  - CHEST PAIN [None]
  - HYPERHIDROSIS [None]
  - MUSCULAR WEAKNESS [None]
  - NAUSEA [None]
